FAERS Safety Report 18444255 (Version 9)
Quarter: 2022Q2

REPORT INFORMATION
  Report Type: Spontaneous
  Country: GB (occurrence: GB)
  Receive Date: 20201030
  Receipt Date: 20220630
  Transmission Date: 20220720
  Serious: Yes (Hospitalization, Other)
  Sender: FDA-Public Use
  Company Number: None

PATIENT
  Age: 63 Year
  Sex: Male

DRUGS (4)
  1. ARIPIPRAZOLE [Suspect]
     Active Substance: ARIPIPRAZOLE
     Indication: Product used for unknown indication
     Dosage: 400 MG, QMO
     Route: 065
  2. AMISULPRIDE [Suspect]
     Active Substance: AMISULPRIDE
     Indication: Product used for unknown indication
     Dosage: UNK, TOP DOSE
  3. CLOZARIL [Suspect]
     Active Substance: CLOZAPINE
     Indication: Schizophrenia
     Dosage: 200 MILLIGRAM, BID,400 MILLIGRAM, ONCE A DAY9^200 MILLIGRAM, BID)
     Route: 048
     Dates: start: 20171110, end: 20191230
  4. ARIPIPRAZOLE [Suspect]
     Active Substance: ARIPIPRAZOLE
     Indication: Product used for unknown indication
     Dosage: 400 MILLIGRAM, 1 MONTHLY, DEPOTE

REACTIONS (11)
  - Antipsychotic drug level increased [Unknown]
  - White blood cell count decreased [Recovered/Resolved]
  - Agitation [Unknown]
  - Delusion [Unknown]
  - Schizophrenia [Unknown]
  - Neutropenia [Recovered/Resolved]
  - Haemoglobin decreased [Recovered/Resolved]
  - Seizure [Unknown]
  - Sedation [Unknown]
  - Salivary hypersecretion [Unknown]
  - Neutrophil count decreased [Recovering/Resolving]
